FAERS Safety Report 20734294 (Version 3)
Quarter: 2024Q1

REPORT INFORMATION
  Report Type: Spontaneous
  Country: JP (occurrence: None)
  Receive Date: 20220421
  Receipt Date: 20240119
  Transmission Date: 20240410
  Serious: Yes (Death, Hospitalization)
  Sender: FDA-Public Use
  Company Number: JP-ROCHE-3079933

PATIENT
  Age: 47 Year
  Sex: Male
  Weight: 66 kg

DRUGS (8)
  1. RITUXAN [Suspect]
     Active Substance: RITUXIMAB
     Indication: Pemphigus
     Route: 041
     Dates: start: 20220118, end: 20220118
  2. RITUXAN [Suspect]
     Active Substance: RITUXIMAB
     Indication: Pemphigus
     Route: 041
     Dates: start: 20220208, end: 20220208
  3. PREDONINE [Suspect]
     Active Substance: PREDNISOLONE
     Indication: Pemphigus
     Route: 048
     Dates: start: 20200804
  4. MIZORIBINE [Suspect]
     Active Substance: MIZORIBINE
     Indication: Pemphigus
     Route: 048
     Dates: start: 20211220, end: 20220223
  5. SULFAMETHOXAZOLE\TRIMETHOPRIM [Concomitant]
     Active Substance: SULFAMETHOXAZOLE\TRIMETHOPRIM
     Route: 048
     Dates: start: 20200923
  6. DAYVIGO [Concomitant]
     Active Substance: LEMBOREXANT
     Indication: Insomnia
     Dates: start: 20210830, end: 20220223
  7. BROTIZOLAM [Concomitant]
     Active Substance: BROTIZOLAM
     Indication: Insomnia
     Dates: start: 20210924, end: 20220223
  8. VONOPRAZAN FUMARATE [Concomitant]
     Active Substance: VONOPRAZAN FUMARATE
     Indication: Prophylaxis
     Dates: start: 20210917

REACTIONS (2)
  - COVID-19 [Fatal]
  - Hypogammaglobulinaemia [Fatal]

NARRATIVE: CASE EVENT DATE: 20220223
